FAERS Safety Report 4859234-4 (Version None)
Quarter: 2005Q4

REPORT INFORMATION
  Report Type: 
  Country: None (occurrence: None)
  Receive Date: 20051219
  Receipt Date: 20051209
  Transmission Date: 20060501
  Serious: Yes (Death)
  Sender: FDA-Public Use
  Company Number: US-AMGEN-US160933

PATIENT
  Sex: Male

DRUGS (1)
  1. SENSIPAR [Suspect]
     Indication: HYPERPARATHYROIDISM SECONDARY
     Route: 048
     Dates: start: 20040708, end: 20040820

REACTIONS (6)
  - ANOREXIA [None]
  - BLOOD CALCIUM DECREASED [None]
  - BONE PAIN [None]
  - CARDIAC FAILURE CONGESTIVE [None]
  - HYPERSENSITIVITY [None]
  - MIGRAINE [None]
